FAERS Safety Report 16438138 (Version 1)
Quarter: 2019Q2

REPORT INFORMATION
  Report Type: Spontaneous
  Country: US (occurrence: US)
  Receive Date: 20190617
  Receipt Date: 20190617
  Transmission Date: 20190711
  Serious: No
  Sender: FDA-Public Use
  Company Number: US-AUROBINDO-AUR-APU-2018-055109

PATIENT

DRUGS (2)
  1. PENICILLIN V POTASSIUM TABLETS USP 500MG [Suspect]
     Active Substance: PENICILLIN V POTASSIUM
     Indication: CHRONIC PIGMENTED PURPURA
     Dosage: 2 TABLETS PER DAY
     Route: 065
     Dates: start: 20181008, end: 20181009
  2. PENICILLIN V POTASSIUM TABLETS USP 500MG [Suspect]
     Active Substance: PENICILLIN V POTASSIUM
     Indication: DERMATITIS

REACTIONS (1)
  - Drug ineffective [Unknown]
